FAERS Safety Report 8395682-6 (Version None)
Quarter: 2012Q2

REPORT INFORMATION
  Report Type: 
  Country: None (occurrence: None)
  Receive Date: 20120530
  Receipt Date: 20120222
  Transmission Date: 20120825
  Serious: No
  Sender: FDA-Public Use
  Company Number: US-GLAXOSMITHKLINE-A0966993A

PATIENT
  Age: 70 Year
  Sex: Male

DRUGS (4)
  1. IBUPROFEN (ADVIL) [Concomitant]
  2. FLOMAX [Concomitant]
  3. VENTOLIN [Suspect]
     Indication: CHRONIC OBSTRUCTIVE PULMONARY DISEASE
     Dosage: 1SPR VARIABLE DOSE
     Route: 055
     Dates: start: 20120214, end: 20120201
  4. MUCINEX [Concomitant]

REACTIONS (8)
  - SINUS CONGESTION [None]
  - DRY MOUTH [None]
  - EAR DISCOMFORT [None]
  - THROAT IRRITATION [None]
  - NASAL INFLAMMATION [None]
  - RHINORRHOEA [None]
  - FEELING HOT [None]
  - INSOMNIA [None]
